FAERS Safety Report 5254877-0 (Version None)
Quarter: 2007Q1

REPORT INFORMATION
  Report Type: 
  Country: None (occurrence: None)
  Receive Date: 20070305
  Receipt Date: 20070226
  Transmission Date: 20070707
  Serious: Yes (Life-Threatening, Hospitalization, Other)
  Sender: FDA-Public Use
  Company Number: JP-BRISTOL-MYERS SQUIBB COMPANY-13612445

PATIENT
  Age: 56 Year
  Sex: Female

DRUGS (4)
  1. MITOMYCIN [Suspect]
     Indication: OVARIAN CANCER
     Route: 042
     Dates: start: 20060531, end: 20061115
  2. CISPLATIN [Suspect]
     Indication: OVARIAN CANCER
     Dates: start: 20060320, end: 20060101
  3. PACLITAXEL [Suspect]
     Indication: OVARIAN CANCER
     Dates: start: 20060320, end: 20060101
  4. CAMPTOSAR [Suspect]
     Indication: OVARIAN CANCER
     Route: 042
     Dates: start: 20061115, end: 20061115

REACTIONS (3)
  - HAEMOLYTIC URAEMIC SYNDROME [None]
  - LIVER DISORDER [None]
  - PANCYTOPENIA [None]
